FAERS Safety Report 9304846 (Version 1)
Quarter: 2013Q2

REPORT INFORMATION
  Report Type: Spontaneous
  Country: IT (occurrence: IT)
  Receive Date: 20130523
  Receipt Date: 20130523
  Transmission Date: 20140414
  Serious: Yes (Other)
  Sender: FDA-Public Use
  Company Number: IT-MYLANLABS-2013S1010535

PATIENT
  Age: 60 Year
  Sex: Female

DRUGS (1)
  1. LORAZEPAM [Suspect]
     Indication: INSOMNIA
     Route: 048
     Dates: start: 20130325, end: 20130325

REACTIONS (2)
  - Sopor [Recovering/Resolving]
  - Amnesia [Recovering/Resolving]
